FAERS Safety Report 25503984 (Version 1)
Quarter: 2025Q3

REPORT INFORMATION
  Report Type: Spontaneous
  Country: US (occurrence: None)
  Receive Date: 20250702
  Receipt Date: 20250702
  Transmission Date: 20251020
  Serious: Yes (Hospitalization)
  Sender: FDA-CTU
  Company Number: None

PATIENT
  Sex: Female

DRUGS (11)
  1. XOLAIR [Suspect]
     Active Substance: OMALIZUMAB
     Indication: Asthma
     Dosage: INJECT 300 MG UNDER THE SKIN (SUBCUTANEOUS INJECTION) EVERY TWO WEEKS?
     Route: 058
     Dates: start: 20250130
  2. ALBUTEROL AER HFA [Concomitant]
  3. AMITIZA [Concomitant]
     Active Substance: LUBIPROSTONE
  4. BETAMETH [Concomitant]
  5. CICLOPIROX CRE [Concomitant]
  6. CLARISCAN [Concomitant]
     Active Substance: GADOTERATE MEGLUMINE
  7. DITROPAN XL [Concomitant]
     Active Substance: OXYBUTYNIN CHLORIDE
  8. DUPIXENT [Concomitant]
     Active Substance: DUPILUMAB
  9. ERYTHROMYCIN [Concomitant]
     Active Substance: ERYTHROMYCIN
  10. FAMOTIDINE [Concomitant]
     Active Substance: FAMOTIDINE
  11. FLOMAX [Concomitant]
     Active Substance: TAMSULOSIN HYDROCHLORIDE

REACTIONS (2)
  - Asthma [None]
  - Respiratory failure [None]
